APPROVED DRUG PRODUCT: LEVOFLOXACIN
Active Ingredient: LEVOFLOXACIN
Strength: 0.5%
Dosage Form/Route: SOLUTION/DROPS;OPHTHALMIC
Application: A090268 | Product #001
Applicant: SCIEGEN PHARMACEUTICALS INC
Approved: Dec 20, 2010 | RLD: No | RS: No | Type: DISCN